FAERS Safety Report 20825046 (Version 1)
Quarter: 2022Q2

REPORT INFORMATION
  Report Type: Spontaneous
  Country: US (occurrence: US)
  Receive Date: 20220513
  Receipt Date: 20220513
  Transmission Date: 20220721
  Serious: Yes (Other)
  Sender: FDA-Public Use
  Company Number: US-Glenmark Generics Europe Ltd.-GGEL20110800754

PATIENT
  Age: 75 Year
  Sex: Female

DRUGS (1)
  1. LEVOFLOXACIN [Suspect]
     Active Substance: LEVOFLOXACIN
     Indication: Infection
     Route: 065

REACTIONS (5)
  - Tubulointerstitial nephritis [Unknown]
  - Delirium [Unknown]
  - Sepsis [Unknown]
  - Rash [Unknown]
  - Pyrexia [Unknown]
